FAERS Safety Report 12224267 (Version 2)
Quarter: 2016Q2

REPORT INFORMATION
  Report Type: Other
  Country: JP (occurrence: JP)
  Receive Date: 20160331
  Receipt Date: 20160408
  Transmission Date: 20160815
  Serious: Yes (Other)
  Sender: FDA-Public Use
  Company Number: JP-LUNDBECK-DKLU2011634

PATIENT
  Age: 87 Year
  Sex: Male

DRUGS (5)
  1. ALFACALCIDOL [Concomitant]
     Active Substance: ALFACALCIDOL
     Indication: PRODUCT USED FOR UNKNOWN INDICATION
     Route: 065
  2. SPRYCEL [Suspect]
     Active Substance: DASATINIB
     Indication: PRODUCT USED FOR UNKNOWN INDICATION
     Dosage: BEFORE HEMODIALYSIS
     Route: 048
     Dates: end: 201412
  3. PRECIPITATED CALCIUM CARBONATE [Concomitant]
     Active Substance: CALCIUM CARBONATE
     Indication: PRODUCT USED FOR UNKNOWN INDICATION
     Route: 065
  4. TRIAZOLAM. [Concomitant]
     Active Substance: TRIAZOLAM
     Indication: PRODUCT USED FOR UNKNOWN INDICATION
     Route: 065
  5. DOPS [Suspect]
     Active Substance: DROXIDOPA
     Indication: HAEMODIALYSIS
     Dosage: BEFORE HEMODIALYSIS AND 1HOUR AFTER HEMODIALYSIS
     Route: 048

REACTIONS (5)
  - Oedema [Recovering/Resolving]
  - Brain natriuretic peptide increased [Recovering/Resolving]
  - Electrocardiogram QT prolonged [Recovering/Resolving]
  - Blood creatine phosphokinase increased [Recovering/Resolving]
  - Ventricular hypokinesia [Recovering/Resolving]
